FAERS Safety Report 19666779 (Version 2)
Quarter: 2022Q4

REPORT INFORMATION
  Report Type: Report from Study
  Country: US (occurrence: US)
  Receive Date: 20210806
  Receipt Date: 20221205
  Transmission Date: 20230113
  Serious: Yes (Hospitalization, Other)
  Sender: FDA-Public Use
  Company Number: US-TAKEDA-2021TUS048976

PATIENT
  Sex: Female
  Weight: 72 kg

DRUGS (10)
  1. HUMAN IMMUNOGLOBULIN G [Suspect]
     Active Substance: HUMAN IMMUNOGLOBULIN G
     Indication: Polyarthritis
     Dosage: 2000 MILLIGRAM/KILOGRAM
     Route: 042
     Dates: start: 20210225
  2. HUMAN IMMUNOGLOBULIN G [Suspect]
     Active Substance: HUMAN IMMUNOGLOBULIN G
     Dosage: 2000 MILLIGRAM/KILOGRAM, Q6WEEKS
     Route: 042
     Dates: start: 20211227
  3. FOLIC ACID [Concomitant]
     Active Substance: FOLIC ACID
  4. HYDROCHLOROTHIAZIDE [Concomitant]
     Active Substance: HYDROCHLOROTHIAZIDE
  5. PREDNISONE [Concomitant]
     Active Substance: PREDNISONE
  6. LISINOPRIL [Concomitant]
     Active Substance: LISINOPRIL
  7. METHOTREXATE [Concomitant]
     Active Substance: METHOTREXATE
  8. AMLODIPINE [Concomitant]
     Active Substance: AMLODIPINE BESYLATE
  9. FAMOTIDINE [Concomitant]
     Active Substance: FAMOTIDINE
  10. NORVASC [Concomitant]
     Active Substance: AMLODIPINE BESYLATE

REACTIONS (2)
  - Fracture [Unknown]
  - Inappropriate schedule of product administration [Unknown]
